FAERS Safety Report 21262892 (Version 1)
Quarter: 2022Q3

REPORT INFORMATION
  Report Type: Spontaneous
  Country: AT (occurrence: AT)
  Receive Date: 20220828
  Receipt Date: 20220828
  Transmission Date: 20221027
  Serious: Yes (Other)
  Sender: FDA-Public Use
  Company Number: AT-ORGANON-O2208AUT001298

PATIENT
  Age: 28 Year
  Sex: Female

DRUGS (8)
  1. BETAMETHASONE [Suspect]
     Active Substance: BETAMETHASONE
     Indication: Maternal therapy to enhance foetal lung maturity
     Dosage: IT WAS PLANNED TO GIVE IT ONLY 2 TIMES
     Route: 042
     Dates: start: 20201125, end: 20201125
  2. ATOSIBAN [Suspect]
     Active Substance: ATOSIBAN
     Indication: Tocolysis
     Dosage: UNK
  3. MAGNESIUM VERLA [MAGNESIUM] [Concomitant]
     Dosage: (REPORTED AS ^1-1-1^); MINERAL SUPPLEMENT THAT CONTAINS MAGNESIUM
  4. PREGNAVIT [Concomitant]
     Dosage: UNK, BID (REPORTED AS ^1X1^ ); FOOD SUPPLEMENT WITH VARIOUS VITAMINS, TRACE ELEMENTS AND MINERALS US
  5. DEQUALINIUM CHLORIDE [Concomitant]
     Active Substance: DEQUALINIUM CHLORIDE
     Dosage: UNK, QD (REPORTED AS 0-0-1); TABLETS CONTAIN DEQUALINIUM CHLORIDE
     Route: 067
     Dates: start: 20201130
  6. CEPHALOBENE [CEFALEXIN] [Concomitant]
     Dosage: 1-0-1
     Dates: end: 20201204
  7. ENOXAPARIN SODIUM [Concomitant]
     Active Substance: ENOXAPARIN SODIUM
     Dosage: UNK, QD; REPORTED AS 4000 IE 0-0-1
  8. PROGESTERONE [Concomitant]
     Active Substance: PROGESTERONE
     Dosage: 200 MILLIGRAM

REACTIONS (2)
  - Dyspnoea [Recovered/Resolved]
  - Maternal exposure during pregnancy [Recovered/Resolved]

NARRATIVE: CASE EVENT DATE: 20201125
